FAERS Safety Report 4771514-X (Version None)
Quarter: 2005Q3

REPORT INFORMATION
  Report Type: 
  Country: None (occurrence: None)
  Receive Date: 20050913
  Receipt Date: 20050913
  Transmission Date: 20060218
  Serious: No
  Sender: FDA-Public Use
  Company Number: None

PATIENT
  Age: 25 Year
  Sex: Female
  Weight: 56 kg

DRUGS (1)
  1. HEMABATE [Suspect]
     Indication: POSTPARTUM HAEMORRHAGE
     Dosage: 250 MCG STAT IM
     Route: 030
     Dates: start: 20050908, end: 20050908

REACTIONS (5)
  - ABDOMINAL PAIN UPPER [None]
  - MUSCLE SPASMS [None]
  - RESPIRATORY DISTRESS [None]
  - STRIDOR [None]
  - WHEEZING [None]
